FAERS Safety Report 15035110 (Version 2)
Quarter: 2018Q3

REPORT INFORMATION
  Report Type: Spontaneous
  Country: US (occurrence: US)
  Receive Date: 20180620
  Receipt Date: 20180911
  Transmission Date: 20181010
  Serious: No
  Sender: FDA-Public Use
  Company Number: US-PFIZER INC-2018248104

PATIENT
  Age: 59 Year
  Sex: Female
  Weight: 73 kg

DRUGS (2)
  1. NICOTROL [Suspect]
     Active Substance: NICOTINE
     Indication: SMOKING CESSATION THERAPY
     Dosage: 4 MG; 10MG CARTRIDGE
     Dates: start: 20180525
  2. NICOTROL [Suspect]
     Active Substance: NICOTINE
     Dosage: UNK, AS NEEDED
     Dates: start: 20180523, end: 20180726

REACTIONS (4)
  - Poor quality drug administered [Unknown]
  - Drug ineffective [Unknown]
  - Product quality issue [Unknown]
  - Cough [Recovered/Resolved]

NARRATIVE: CASE EVENT DATE: 20180523
